FAERS Safety Report 21502555 (Version 2)
Quarter: 2022Q4

REPORT INFORMATION
  Report Type: Spontaneous
  Country: DE (occurrence: DE)
  Receive Date: 20221025
  Receipt Date: 20221026
  Transmission Date: 20230113
  Serious: Yes (Hospitalization)
  Sender: FDA-Public Use
  Company Number: None

PATIENT
  Age: 65 Year
  Sex: Male
  Weight: 85 kg

DRUGS (2)
  1. KEYTRUDA [Suspect]
     Active Substance: PEMBROLIZUMAB
     Indication: Neoplasm
     Dosage: 400 MG
     Dates: start: 20220707
  2. INLYTA [Suspect]
     Active Substance: AXITINIB
     Indication: Neoplasm
     Dosage: 5MG TWICE A DAY, FROM 15-JUN-2022 ONLY 5MG ONCE A DAY
     Route: 048
     Dates: start: 20220601, end: 20220722

REACTIONS (1)
  - Disorientation [Recovered/Resolved]

NARRATIVE: CASE EVENT DATE: 20220721
